FAERS Safety Report 10257733 (Version 1)
Quarter: 2014Q2

REPORT INFORMATION
  Report Type: Spontaneous
  Country: US (occurrence: None)
  Receive Date: 20140623
  Receipt Date: 20140623
  Transmission Date: 20141212
  Serious: Yes (Life-Threatening, Hospitalization, Other)
  Sender: FDA-Public Use
  Company Number: None

PATIENT
  Age: 62 Year
  Sex: Male
  Weight: 92.6 kg

DRUGS (1)
  1. LISINOPRIL [Suspect]
     Indication: ANGIOEDEMA
     Route: 048
     Dates: start: 20120321, end: 20140408

REACTIONS (1)
  - Angioedema [None]
